FAERS Safety Report 9834546 (Version 1)
Quarter: 2014Q1

REPORT INFORMATION
  Report Type: Spontaneous
  Country: LT (occurrence: LT)
  Receive Date: 20140122
  Receipt Date: 20140122
  Transmission Date: 20141002
  Serious: Yes (Life-Threatening, Hospitalization)
  Sender: FDA-Public Use
  Company Number: LT-PFIZER INC-2014012487

PATIENT
  Age: 49 Year
  Sex: Female

DRUGS (5)
  1. ZOLOFT [Suspect]
     Dosage: UNKNOWN AMOUNT OF 50 MG TAKEN AS SINGLE DOSE
  2. BROMAZEPAM [Suspect]
     Dosage: TAKEN UNKNOWN AMOUNT OF TABLETS AS SINGLE DOSE
  3. VALSACOR [Suspect]
     Dosage: TAKEN UNKNOWN AMOUNT OF 160MG  TABLETS AS SINGLE DOSE
  4. CAVINTON [Suspect]
     Dosage: TAKEN UNKNOWN AMOUNT OF TABLETS AS SINGLE DOSE
  5. KETANOV [Suspect]
     Dosage: TAKEN UNKNOWN AMOUNT OF TABLETS AS SINGLE DOSE

REACTIONS (7)
  - Overdose [Recovered/Resolved]
  - Suicide attempt [Recovered/Resolved]
  - Nausea [Recovered/Resolved]
  - Vomiting [Recovered/Resolved]
  - Hypotension [Recovered/Resolved]
  - Arrhythmia [Recovered/Resolved]
  - Depressed level of consciousness [Recovered/Resolved]
